FAERS Safety Report 7306449-1 (Version None)
Quarter: 2011Q1

REPORT INFORMATION
  Report Type: 
  Country: None (occurrence: None)
  Receive Date: 20110119
  Receipt Date: 20101006
  Transmission Date: 20110831
  Serious: Yes (Hospitalization)
  Sender: FDA-Public Use
  Company Number: A-US2010-40464

PATIENT
  Age: 64 Year
  Sex: Female

DRUGS (3)
  1. TRACLEER [Suspect]
     Indication: PULMONARY ARTERIAL HYPERTENSION
     Dosage: 125, ORAL, ORAL
     Route: 048
     Dates: start: 20101003, end: 20101003
  2. TRACLEER [Suspect]
     Indication: PULMONARY ARTERIAL HYPERTENSION
     Dosage: 125, ORAL, ORAL
     Route: 048
     Dates: start: 20100830, end: 20101002
  3. VIAGRA [Concomitant]

REACTIONS (4)
  - VOMITING [None]
  - PNEUMONIA [None]
  - NAUSEA [None]
  - DYSPNOEA [None]
